FAERS Safety Report 25346904 (Version 1)
Quarter: 2025Q2

REPORT INFORMATION
  Report Type: Spontaneous
  Country: US (occurrence: None)
  Receive Date: 20250521
  Receipt Date: 20250521
  Transmission Date: 20250717
  Serious: Yes (Other)
  Sender: FDA-CTU
  Company Number: None

PATIENT
  Age: 83 Year
  Sex: Female

DRUGS (1)
  1. XDEMVY [Suspect]
     Active Substance: LOTILANER
     Indication: Blepharitis
     Dosage: 1 DROP(S) - GTT BID INTRAOCULAR
     Route: 031
     Dates: start: 20250325, end: 20250518

REACTIONS (2)
  - Lacrimation increased [None]
  - Eye pain [None]

NARRATIVE: CASE EVENT DATE: 20250517
